FAERS Safety Report 21072016 (Version 1)
Quarter: 2022Q3

REPORT INFORMATION
  Report Type: Spontaneous
  Country: US (occurrence: US)
  Receive Date: 20220712
  Receipt Date: 20220712
  Transmission Date: 20221026
  Serious: No
  Sender: FDA-Public Use
  Company Number: US-NOVOPROD-903654

PATIENT
  Sex: Female

DRUGS (1)
  1. RYBELSUS [Suspect]
     Active Substance: SEMAGLUTIDE
     Indication: Diabetes mellitus
     Dosage: 7 MG
     Route: 048
     Dates: start: 202005

REACTIONS (3)
  - Erythema [Recovered/Resolved]
  - Pain in extremity [Recovered/Resolved]
  - Product closure removal difficult [Recovered/Resolved]
